FAERS Safety Report 8583683-4 (Version None)
Quarter: 2012Q3

REPORT INFORMATION
  Report Type: 
  Country: None (occurrence: None)
  Receive Date: 20120809
  Receipt Date: 20120716
  Transmission Date: 20120928
  Serious: No
  Sender: FDA-Public Use
  Company Number: US-MSD-1207USA001420

PATIENT

DRUGS (9)
  1. CRESTOR [Concomitant]
     Dosage: 20 MG, UNK
  2. DEXILANT [Concomitant]
  3. TRAMADOL HYDROCHLORIDE [Concomitant]
  4. LEVOTHROID [Concomitant]
     Dosage: 0.05 MICROGRAM, UNK
  5. CLARITIN [Concomitant]
  6. CARAFATE [Concomitant]
  7. JANUVIA [Suspect]
     Indication: DIABETES MELLITUS
     Dosage: 100 MG, QD
     Route: 048
     Dates: start: 20120615
  8. TRILIPIX [Concomitant]
  9. LEVEMIR [Concomitant]

REACTIONS (1)
  - NO ADVERSE EVENT [None]
